FAERS Safety Report 6510017-9 (Version None)
Quarter: 2009Q4

REPORT INFORMATION
  Report Type: 
  Country: None (occurrence: None)
  Receive Date: 20091222
  Receipt Date: 20091204
  Transmission Date: 20100525
  Serious: Yes (Other)
  Sender: FDA-Public Use
  Company Number: PHHY2009DE55665

PATIENT
  Sex: Female

DRUGS (2)
  1. ESTRADERM [Suspect]
     Dosage: 50 UG/DAY
     Route: 062
     Dates: start: 20020101
  2. ESTRADERM [Suspect]
     Dosage: 50 UG/DAY
     Route: 062
     Dates: start: 20090101

REACTIONS (1)
  - VEIN PAIN [None]
